FAERS Safety Report 7825420-4 (Version None)
Quarter: 2011Q3

REPORT INFORMATION
  Report Type: 
  Country: None (occurrence: None)
  Receive Date: 20110919
  Receipt Date: 20110907
  Transmission Date: 20111222
  Serious: Yes (Hospitalization)
  Sender: FDA-Public Use
  Company Number: US-145247

PATIENT
  Sex: Female

DRUGS (1)
  1. WINRHO SDF LIQUID [Suspect]
     Indication: IDIOPATHIC THROMBOCYTOPENIC PURPURA
     Dates: start: 20101201, end: 20101201

REACTIONS (4)
  - MALAISE [None]
  - TACHYCARDIA [None]
  - INTRAVASCULAR HAEMOLYSIS [None]
  - HEPATIC FUNCTION ABNORMAL [None]
